FAERS Safety Report 20052134 (Version 2)
Quarter: 2021Q4

REPORT INFORMATION
  Report Type: Spontaneous
  Country: JP (occurrence: JP)
  Receive Date: 20211110
  Receipt Date: 20211119
  Transmission Date: 20220303
  Serious: Yes (Other)
  Sender: FDA-Public Use
  Company Number: JP-NOVARTISPH-NVSJ2021JP018021

PATIENT
  Age: 16 Year
  Sex: Female

DRUGS (2)
  1. ARZERRA [Suspect]
     Active Substance: OFATUMUMAB
     Indication: Nephrotic syndrome
     Dosage: 300CC
     Route: 041
  2. ARZERRA [Suspect]
     Active Substance: OFATUMUMAB
     Dosage: 300CC
     Route: 041

REACTIONS (6)
  - Oxygen saturation decreased [Unknown]
  - Respiratory disorder [Recovering/Resolving]
  - Oropharyngeal discomfort [Unknown]
  - Cyanosis [Unknown]
  - Infusion related reaction [Recovering/Resolving]
  - Off label use [Unknown]
